FAERS Safety Report 21403542 (Version 1)
Quarter: 2022Q4

REPORT INFORMATION
  Report Type: Spontaneous
  Country: CH (occurrence: CH)
  Receive Date: 20221003
  Receipt Date: 20221003
  Transmission Date: 20230112
  Serious: Yes (Other)
  Sender: FDA-Public Use
  Company Number: None

PATIENT
  Age: 77 Year
  Sex: Female
  Weight: 63.8 kg

DRUGS (17)
  1. ALDACTONE [Suspect]
     Active Substance: SPIRONOLACTONE
     Indication: Cardiac failure
     Dosage: 25 MG, 1X/DAY
     Route: 048
     Dates: start: 20220708
  2. PRAMIPEXOLE [Suspect]
     Active Substance: PRAMIPEXOLE
     Indication: Restless legs syndrome
     Dosage: 0.25 MG AT NIGHT
     Route: 048
     Dates: start: 20220708
  3. PRAMIPEXOLE [Suspect]
     Active Substance: PRAMIPEXOLE
     Dosage: 0.625 MG IN THE EVENING
     Route: 048
     Dates: start: 20220708
  4. GABAPENTIN [Suspect]
     Active Substance: GABAPENTIN
     Indication: Restless legs syndrome
     Dosage: RATHER LOW DOSE, EXACT DOSE UNKNOWN
  5. TORSEMIDE [Concomitant]
     Active Substance: TORSEMIDE
     Dosage: MORNING AND NOON, 1/4-1/4-0 (OF 200 MG TABLETS)
     Route: 048
  6. METOLAZONE [Concomitant]
     Active Substance: METOLAZONE
     Dosage: 5 MG, IF NECESSARY: WHEN WEIGHT IS OVER 66 KG
     Route: 048
  7. ELIQUIS [Concomitant]
     Active Substance: APIXABAN
     Dosage: 2.5 MG, 2X/DAY, 1-0-1
     Route: 048
  8. PANTOPRAZOLE [Concomitant]
     Active Substance: PANTOPRAZOLE
     Dosage: 20 MG, 1X/DAY, 1-0-0
     Route: 048
  9. MAGNESIUM ASPARTATE HYDROCHLORIDE [Concomitant]
     Active Substance: MAGNESIUM ASPARTATE HYDROCHLORIDE
     Dosage: 20 MMOL, 1X/DAY
     Route: 048
  10. VITAMIN B12 [Concomitant]
     Active Substance: CYANOCOBALAMIN
     Dosage: EVERY 3 MONTHS
     Route: 058
  11. CALCIUM\CHOLECALCIFEROL [Concomitant]
     Active Substance: CALCIUM\CHOLECALCIFEROL
     Dosage: 1X/DAY, 1-0-0
     Route: 048
  12. HERBALS\HOPS\VALERIAN [Concomitant]
     Active Substance: HERBALS\HOPS\VALERIAN
     Dosage: 500 MG, 1X/DAY, 0-0-0-1
     Route: 048
  13. NOVALGIN (METAMIZOLE SODIUM) [Concomitant]
     Active Substance: METAMIZOLE SODIUM
     Dosage: 1000 MG EVERY 6 HOURS, 2-2-2-2, IN RESERVE AS DROPS
     Route: 048
  14. PANOTILE [FLUDROCORTISONE ACETATE;LIDOCAINE HYDROCHLORIDE;NEOMYCIN SUL [Concomitant]
     Dosage: AS NEEDED
     Route: 001
  15. DEXAMETHASONE SODIUM PHOSPHATE [Concomitant]
     Active Substance: DEXAMETHASONE SODIUM PHOSPHATE
     Dosage: AS NEEDED
     Route: 047
  16. BULBOID [Concomitant]
     Dosage: AS NEEDED
     Route: 054
  17. DULCOLAX (BISACODYL) [Concomitant]
     Active Substance: BISACODYL
     Dosage: 5 MG, AS NEEDED
     Route: 048

REACTIONS (1)
  - Condition aggravated [Not Recovered/Not Resolved]
